FAERS Safety Report 6062673-X (Version None)
Quarter: 2009Q1

REPORT INFORMATION
  Report Type: 
  Country: None (occurrence: None)
  Receive Date: 20090129
  Receipt Date: 20090114
  Transmission Date: 20090719
  Serious: Yes (Hospitalization)
  Sender: FDA-Public Use
  Company Number: MEDI-0005469

PATIENT
  Age: 7 Month
  Sex: Male
  Weight: 6.46 kg

DRUGS (8)
  1. SYNAGIS [Suspect]
     Dosage: SEE IMAGE
     Route: 030
     Dates: start: 20061005, end: 20070216
  2. SYNAGIS [Suspect]
     Dosage: SEE IMAGE
     Route: 030
     Dates: start: 20061005
  3. SYNAGIS [Suspect]
     Dosage: SEE IMAGE
     Route: 030
     Dates: start: 20061027
  4. SYNAGIS [Suspect]
     Dosage: SEE IMAGE
     Route: 030
     Dates: start: 20061124
  5. SYNAGIS [Suspect]
     Dosage: SEE IMAGE
     Route: 030
     Dates: start: 20061218
  6. SYNAGIS [Suspect]
     Dosage: SEE IMAGE
     Route: 030
     Dates: start: 20070117
  7. SIMVASTATIN [Concomitant]
  8. IPRATROPIUM BROMIDE [Concomitant]

REACTIONS (6)
  - BRONCHIOLITIS [None]
  - BRONCHITIS [None]
  - INTRAVENTRICULAR HAEMORRHAGE [None]
  - IRRITABILITY [None]
  - PATENT DUCTUS ARTERIOSUS [None]
  - RESPIRATORY SYNCYTIAL VIRUS INFECTION [None]
